FAERS Safety Report 5317160-0 (Version None)
Quarter: 2007Q2

REPORT INFORMATION
  Report Type: 
  Country: None (occurrence: None)
  Receive Date: 20070504
  Receipt Date: 20070423
  Transmission Date: 20071010
  Serious: Yes (Hospitalization)
  Sender: FDA-Public Use
  Company Number: FI-AMGEN-US218918

PATIENT
  Sex: Male
  Weight: 65 kg

DRUGS (14)
  1. ENBREL [Suspect]
     Indication: ANKYLOSING SPONDYLITIS
     Route: 058
     Dates: start: 20020606, end: 20070329
  2. ENBREL [Suspect]
     Route: 058
     Dates: start: 20070412
  3. MIANSERIN [Concomitant]
     Dosage: 30 MG
     Dates: start: 20060921
  4. ZOPICLONE [Concomitant]
     Dosage: 7.5 MG
     Dates: start: 20040630
  5. CALCIUM CHLORIDE [Concomitant]
     Dosage: 1000 MG
     Dates: start: 20020305
  6. FLUOROMETHOLONE [Concomitant]
     Dosage: 1 MG
     Route: 061
     Dates: start: 20061128
  7. ALFUZOSIN [Concomitant]
     Dosage: 10 MG
     Dates: start: 20031210
  8. TIMOLOL MALEATE [Concomitant]
     Dosage: 0.20 MG
     Dates: start: 20070115
  9. TRAMADOL HCL [Concomitant]
     Dosage: 50 MG
     Dates: start: 20061109, end: 20070225
  10. DICLOFENAC [Concomitant]
     Dosage: 50 MG PRN
     Route: 048
     Dates: start: 20041014
  11. METHYLPREDNISOLONE 16MG TAB [Concomitant]
     Dosage: 4 MG/4 DAYS/WEEK
     Route: 048
     Dates: start: 20050924
  12. METHYLPREDNISOLONE 16MG TAB [Concomitant]
     Dosage: 2 MG/3 DAYS/WEEK
     Route: 048
     Dates: start: 20050924
  13. DIAZEPAM [Concomitant]
     Dosage: 5 MG PRN
     Dates: start: 20040604
  14. VITAMIN D3 [Concomitant]
     Dosage: 800
     Dates: start: 20020305

REACTIONS (1)
  - HEMIPARESIS [None]
